FAERS Safety Report 20971447 (Version 2)
Quarter: 2024Q2

REPORT INFORMATION
  Report Type: Spontaneous
  Country: US (occurrence: US)
  Receive Date: 20220616
  Receipt Date: 20240510
  Transmission Date: 20240716
  Serious: No
  Sender: FDA-Public Use
  Company Number: US-SA-SAC20220610000481

PATIENT
  Sex: Female
  Weight: 82.5 kg

DRUGS (13)
  1. DUPIXENT [Suspect]
     Active Substance: DUPILUMAB
     Indication: Dermatitis atopic
     Dosage: 300 MG, QOW
     Route: 058
  2. FLUOXETINE HYDROCHLORIDE [Concomitant]
     Active Substance: FLUOXETINE HYDROCHLORIDE
     Dosage: UNK
  3. FLUTICASONE PROPIONATE [Concomitant]
     Active Substance: FLUTICASONE PROPIONATE
     Dosage: UNK
  4. AZELASTINE HYDROCHLORIDE [Concomitant]
     Active Substance: AZELASTINE HYDROCHLORIDE
     Dosage: UNK
  5. INTRAROSA [Concomitant]
     Active Substance: PRASTERONE
     Dosage: UNK
  6. ONDANSETRON [Concomitant]
     Active Substance: ONDANSETRON
     Dosage: UNK
  7. AZITHROMYCIN [Concomitant]
     Active Substance: AZITHROMYCIN
     Dosage: UNK
  8. ATOVAQUONE AND PROGUANIL HCL [Concomitant]
     Active Substance: ATOVAQUONE\PROGUANIL HYDROCHLORIDE
     Dosage: UNK
  9. FLUOROMETHOLONE [Concomitant]
     Active Substance: FLUOROMETHOLONE
     Dosage: UNK
  10. OFLOXACIN [Concomitant]
     Active Substance: OFLOXACIN
     Dosage: UNK
  11. METHYLPREDNISOLONE [Concomitant]
     Active Substance: METHYLPREDNISOLONE
     Dosage: UNK
  12. GAVILYTE G [Concomitant]
     Active Substance: POLYETHYLENE GLYCOL 3350\POTASSIUM CHLORIDE\SODIUM BICARBONATE\SODIUM CHLORIDE\SODIUM SULFATE
     Dosage: UNK
  13. MODERNA COVID-19 VACCINE [Concomitant]
     Active Substance: ELASOMERAN
     Indication: Immunisation
     Dosage: UNK

REACTIONS (7)
  - Chapped lips [Unknown]
  - Erythema of eyelid [Unknown]
  - Eyelid exfoliation [Unknown]
  - Eyelid rash [Unknown]
  - Skin exfoliation [Unknown]
  - Therapeutic response shortened [Unknown]
  - Apraxia [Unknown]
